FAERS Safety Report 9691838 (Version 2)
Quarter: 2013Q4

REPORT INFORMATION
  Report Type: Spontaneous
  Country: IE (occurrence: IE)
  Receive Date: 20131117
  Receipt Date: 20131125
  Transmission Date: 20140711
  Serious: Yes (Other)
  Sender: FDA-Public Use
  Company Number: IE-ASTRAZENECA-2013SE83352

PATIENT
  Age: 1 Year
  Sex: Male

DRUGS (2)
  1. SYNAGIS [Suspect]
     Indication: LUNG DISORDER
     Route: 030
     Dates: start: 20121130
  2. SYNAGIS [Suspect]
     Indication: LUNG DISORDER
     Route: 030
     Dates: start: 20131009

REACTIONS (7)
  - Irritability [Unknown]
  - Viral infection [Unknown]
  - Hypophagia [Unknown]
  - Cough [Unknown]
  - Croup infectious [Unknown]
  - Tonsillitis [Unknown]
  - Body temperature increased [Recovering/Resolving]
